FAERS Safety Report 5694541-7 (Version None)
Quarter: 2008Q2

REPORT INFORMATION
  Report Type: 
  Country: None (occurrence: None)
  Receive Date: 20080404
  Receipt Date: 20080326
  Transmission Date: 20081010
  Serious: Yes (Other)
  Sender: FDA-Public Use
  Company Number: US-AVENTIS-200716201US

PATIENT
  Sex: Male
  Weight: 52.27 kg

DRUGS (9)
  1. LANTUS [Suspect]
     Dosage: DOSE: 6 - 7
     Route: 058
  2. OPTICLIK (INSULIN INJECTION PEN) [Suspect]
  3. OPTICLIK (INSULIN INJECTION PEN) [Suspect]
  4. HUMALOG [Concomitant]
     Dosage: DOSE: UNK
  5. PRAVASTATIN [Concomitant]
     Dosage: DOSE: UNK
  6. SYNTHROID [Concomitant]
     Dosage: DOSE: UNK
  7. ACTONEL [Concomitant]
     Dosage: DOSE: UNK
  8. VITAMINS NOS [Concomitant]
     Dosage: DOSE: UNK
  9. ASPIRIN [Concomitant]
     Dosage: DOSE: UNK

REACTIONS (6)
  - BLOOD GLUCOSE DECREASED [None]
  - BLOOD GLUCOSE INCREASED [None]
  - DEHYDRATION [None]
  - DRUG EFFECT INCREASED [None]
  - HYPOGLYCAEMIA [None]
  - WEIGHT DECREASED [None]
